FAERS Safety Report 25259561 (Version 2)
Quarter: 2025Q2

REPORT INFORMATION
  Report Type: Spontaneous
  Country: US (occurrence: US)
  Receive Date: 20250501
  Receipt Date: 20250502
  Transmission Date: 20250716
  Serious: No
  Sender: ORGANON
  Company Number: US-ORGANON-O2504USA001651

PATIENT
  Age: 42 Year
  Sex: Female
  Weight: 143.78 kg

DRUGS (1)
  1. NEXPLANON [Suspect]
     Active Substance: ETONOGESTREL
     Route: 059
     Dates: start: 20240917, end: 20250415

REACTIONS (2)
  - Device breakage [Recovered/Resolved]
  - No adverse event [Unknown]

NARRATIVE: CASE EVENT DATE: 20250409
